FAERS Safety Report 8213040-1 (Version None)
Quarter: 2012Q1

REPORT INFORMATION
  Report Type: 
  Country: None (occurrence: None)
  Receive Date: 20120315
  Receipt Date: 20120307
  Transmission Date: 20120608
  Serious: Yes (Other)
  Sender: FDA-Public Use
  Company Number: US-JNJFOC-20101209149

PATIENT
  Sex: Male
  Weight: 79 kg

DRUGS (9)
  1. ABIRATERONE ACETATE [Suspect]
     Route: 048
  2. LUPRON [Concomitant]
     Indication: PROSTATE CANCER
     Route: 030
     Dates: start: 20090811
  3. LUPRON [Concomitant]
     Indication: HORMONE THERAPY
     Route: 030
     Dates: start: 20090811
  4. VITAMIN D [Concomitant]
     Indication: ROUTINE HEALTH MAINTENANCE
     Route: 048
     Dates: start: 20090811
  5. ABIRATERONE ACETATE [Suspect]
     Indication: PROSTATE CANCER METASTATIC
     Route: 048
     Dates: start: 20090811, end: 20101229
  6. LUPRON [Concomitant]
     Route: 030
     Dates: start: 20081212
  7. LUPRON [Concomitant]
     Route: 030
     Dates: start: 20081212
  8. CALCIUM [Concomitant]
     Indication: PROPHYLAXIS
     Route: 048
     Dates: start: 20090811
  9. PREDNISONE TAB [Suspect]
     Indication: PROSTATE CANCER METASTATIC
     Route: 048
     Dates: start: 20090811

REACTIONS (1)
  - CONDUCTION DISORDER [None]
